FAERS Safety Report 21327935 (Version 1)
Quarter: 2022Q3

REPORT INFORMATION
  Report Type: Spontaneous
  Country: US (occurrence: US)
  Receive Date: 20220913
  Receipt Date: 20220913
  Transmission Date: 20221027
  Serious: Yes (Death, Hospitalization, Other)
  Sender: FDA-Public Use
  Company Number: US-ASTELLAS-2022US031692

PATIENT
  Age: 72 Year
  Sex: Male

DRUGS (1)
  1. XTANDI [Suspect]
     Active Substance: ENZALUTAMIDE
     Indication: Prostate cancer
     Dosage: 160 MG, ONCE DAILY (W OR WO FOOD, SWALLOW WHOLE WITH WATER)
     Route: 048
     Dates: start: 202206, end: 202207

REACTIONS (3)
  - Death [Fatal]
  - Cancer pain [Unknown]
  - Dysphagia [Unknown]
